FAERS Safety Report 7766995-3 (Version None)
Quarter: 2011Q3

REPORT INFORMATION
  Report Type: 
  Country: None (occurrence: None)
  Receive Date: 20110922
  Receipt Date: 20110916
  Transmission Date: 20111222
  Serious: Yes (Life-Threatening, Hospitalization)
  Sender: FDA-Public Use
  Company Number: DK-CELGENEUS-044-21880-11091938

PATIENT
  Sex: Male
  Weight: 79 kg

DRUGS (2)
  1. REVLIMID [Suspect]
     Indication: MULTIPLE MYELOMA
     Dosage: 10 MILLIGRAM
     Route: 048
     Dates: start: 20110810, end: 20110815
  2. ACICLODAN [Concomitant]
     Indication: HERPES ZOSTER
     Route: 065

REACTIONS (1)
  - PULMONARY VENO-OCCLUSIVE DISEASE [None]
